FAERS Safety Report 23543951 (Version 1)
Quarter: 2024Q1

REPORT INFORMATION
  Report Type: Spontaneous
  Country: US (occurrence: US)
  Receive Date: 20240220
  Receipt Date: 20240220
  Transmission Date: 20240409
  Serious: Yes (Other)
  Sender: FDA-Public Use
  Company Number: US-SANDOZ-SDZ2024US015209

PATIENT
  Age: 74 Year
  Sex: Female

DRUGS (4)
  1. BORTEZOMIB [Suspect]
     Active Substance: BORTEZOMIB
     Indication: Acquired Von Willebrand^s disease
     Dosage: 1 MG/M2, STARTING CYCLE 3
     Route: 065
  2. BORTEZOMIB [Suspect]
     Active Substance: BORTEZOMIB
     Indication: Monoclonal gammopathy
     Dosage: 1.3 MG/M2, DAYS 1, 8, 15, AND 22)
     Route: 065
  3. DEXAMETHASONE [Suspect]
     Active Substance: DEXAMETHASONE
     Indication: Monoclonal gammopathy
     Dosage: 40 MG, ON DAYS 1, 8, 15, AND 22
     Route: 065
  4. DEXAMETHASONE [Suspect]
     Active Substance: DEXAMETHASONE
     Indication: Acquired Von Willebrand^s disease

REACTIONS (2)
  - Neuropathy peripheral [Unknown]
  - Off label use [Unknown]
